FAERS Safety Report 12212018 (Version 1)
Quarter: 2016Q1

REPORT INFORMATION
  Report Type: Report from Study
  Country: US (occurrence: US)
  Receive Date: 20160325
  Receipt Date: 20160325
  Transmission Date: 20160526
  Serious: Yes (Other)
  Sender: FDA-Public Use
  Company Number: US-MALLINCKRODT-T201600810

PATIENT
  Age: 29 Year
  Sex: Female
  Weight: 82 kg

DRUGS (6)
  1. DEMADEX [Concomitant]
     Active Substance: TORSEMIDE
     Dosage: 120MG QD
  2. REPOSITORY CORTICOTROPIN INJECTION [Suspect]
     Active Substance: CORTICOTROPIN
     Indication: PROTEINURIA
     Dosage: 40 UNITS TWICE WEEKLY FOR 5 WEEKS 2X/WKLY
     Route: 058
     Dates: start: 20151127, end: 201601
  3. REPOSITORY CORTICOTROPIN INJECTION [Suspect]
     Active Substance: CORTICOTROPIN
     Indication: GLOMERULONEPHRITIS MINIMAL LESION
     Dosage: 80 UNITS (FREQUENCY NOT PROVIDED)
     Route: 065
     Dates: start: 20160311
  4. POTASSIUM [Concomitant]
     Active Substance: POTASSIUM
     Dosage: 40MEQ QD
  5. METOLAZONE. [Concomitant]
     Active Substance: METOLAZONE
     Indication: OEDEMA
     Dosage: 5MG PRN
  6. REPOSITORY CORTICOTROPIN INJECTION [Suspect]
     Active Substance: CORTICOTROPIN
     Indication: NEPHROTIC SYNDROME
     Dosage: 80 UNITS 2X/WEEKLY
     Route: 058
     Dates: start: 201601, end: 20160202

REACTIONS (6)
  - Fatigue [Not Recovered/Not Resolved]
  - Tinnitus [Unknown]
  - Abdominal discomfort [Unknown]
  - Loss of consciousness [Unknown]
  - Oedema [Not Recovered/Not Resolved]
  - Visual impairment [Unknown]

NARRATIVE: CASE EVENT DATE: 201602
